FAERS Safety Report 7804045-0 (Version None)
Quarter: 2011Q4

REPORT INFORMATION
  Report Type: 
  Country: None (occurrence: None)
  Receive Date: 20111010
  Receipt Date: 20111004
  Transmission Date: 20120403
  Serious: Yes (Other)
  Sender: FDA-Public Use
  Company Number: US-JNJFOC-20111002635

PATIENT
  Age: 69 Year
  Sex: Female

DRUGS (6)
  1. LEVAQUIN [Suspect]
     Route: 048
     Dates: start: 20080218
  2. LEVAQUIN [Suspect]
     Indication: STATUS ASTHMATICUS
     Route: 048
     Dates: start: 20081212, end: 20081223
  3. LEVAQUIN [Suspect]
     Route: 048
     Dates: start: 20081212, end: 20081223
  4. LEVAQUIN [Suspect]
     Indication: BRONCHITIS
     Route: 048
     Dates: start: 20081212, end: 20081223
  5. LEVAQUIN [Suspect]
     Route: 048
     Dates: start: 20080218
  6. LEVAQUIN [Suspect]
     Indication: PNEUMONIA BACTERIAL
     Route: 048
     Dates: start: 20080218

REACTIONS (4)
  - INFLAMMATION [None]
  - INAPPROPRIATE SCHEDULE OF DRUG ADMINISTRATION [None]
  - TENDON PAIN [None]
  - TENDON RUPTURE [None]
